FAERS Safety Report 8025060 (Version 7)
Quarter: 2012Q4

REPORT INFORMATION
  Report Type: 
  Country: US (occurrence: US)
  Receive Date: 20110707
  Receipt Date: 20121219
  Transmission Date: 20130627
  Serious: Yes (Other)
  Sender: FDA-Public Use
  Company Number: US-ASTRAZENECA-2011SE26257

PATIENT
  Age: 52 Year
  Sex: Male

DRUGS (18)
  1. SEROQUEL [Suspect]
     Indication: DEPRESSION
     Route: 048
  2. SEROQUEL [Suspect]
     Indication: BIPOLAR DISORDER
     Route: 048
  3. SEROQUEL [Suspect]
     Indication: POST-TRAUMATIC STRESS DISORDER
     Route: 048
  4. SEROQUEL [Suspect]
     Indication: ANXIETY
     Route: 048
  5. SEROQUEL [Suspect]
     Indication: DEPRESSION
     Route: 048
  6. SEROQUEL [Suspect]
     Indication: BIPOLAR DISORDER
     Route: 048
  7. SEROQUEL [Suspect]
     Indication: POST-TRAUMATIC STRESS DISORDER
     Route: 048
  8. SEROQUEL [Suspect]
     Indication: ANXIETY
     Route: 048
  9. SEROQUEL [Suspect]
     Indication: DEPRESSION
     Route: 048
  10. SEROQUEL [Suspect]
     Indication: BIPOLAR DISORDER
     Route: 048
  11. SEROQUEL [Suspect]
     Indication: POST-TRAUMATIC STRESS DISORDER
     Route: 048
  12. SEROQUEL [Suspect]
     Indication: ANXIETY
     Route: 048
  13. SEROQUEL [Suspect]
     Indication: DEPRESSION
     Route: 048
  14. SEROQUEL [Suspect]
     Indication: BIPOLAR DISORDER
     Route: 048
  15. SEROQUEL [Suspect]
     Indication: POST-TRAUMATIC STRESS DISORDER
     Route: 048
  16. SEROQUEL [Suspect]
     Indication: ANXIETY
     Route: 048
  17. ALEVE [Concomitant]
  18. CLONAZEPAM [Concomitant]

REACTIONS (29)
  - Fall [Unknown]
  - Spinal fracture [Unknown]
  - Cervical vertebral fracture [Unknown]
  - Spinal fracture [Unknown]
  - Road traffic accident [Unknown]
  - Neoplasm malignant [Unknown]
  - Multiple injuries [Unknown]
  - Brain neoplasm [Unknown]
  - Hand fracture [Unknown]
  - Insomnia [Unknown]
  - Pain [Unknown]
  - Joint injury [Unknown]
  - Malaise [Unknown]
  - Urinary tract infection [Unknown]
  - Panic attack [Unknown]
  - Drug effect prolonged [Unknown]
  - Hearing impaired [Unknown]
  - Paranoia [Unknown]
  - Tinnitus [Unknown]
  - Nasopharyngitis [Unknown]
  - Poor quality sleep [Unknown]
  - Blood cholesterol increased [Unknown]
  - Malaise [Unknown]
  - Malaise [Unknown]
  - Contusion [Unknown]
  - Back injury [Unknown]
  - Off label use [Unknown]
  - Intentional drug misuse [Unknown]
  - Drug dose omission [Unknown]
